FAERS Safety Report 22286892 (Version 4)
Quarter: 2023Q2

REPORT INFORMATION
  Report Type: Report from Study
  Country: PL (occurrence: PL)
  Receive Date: 20230505
  Receipt Date: 20230523
  Transmission Date: 20230721
  Serious: Yes (Hospitalization, Other)
  Sender: FDA-Public Use
  Company Number: PL-SA-2022SA303573

PATIENT
  Age: 51 Year
  Sex: Male
  Weight: 78.1 kg

DRUGS (11)
  1. DUPILUMAB [Suspect]
     Active Substance: DUPILUMAB
     Indication: Asthma
     Dosage: 1 DF, Q2W
     Route: 058
     Dates: start: 20220706
  2. DUPILUMAB [Suspect]
     Active Substance: DUPILUMAB
     Indication: Chronic rhinosinusitis with nasal polyps
     Dosage: 1 DF, Q2W
     Route: 058
     Dates: start: 20220720, end: 20220720
  3. MOMETASONE FUROATE [Concomitant]
     Active Substance: MOMETASONE FUROATE
     Indication: Chronic rhinosinusitis with nasal polyps
     Dosage: UNK
     Route: 045
     Dates: start: 20210719, end: 20220606
  4. PRONASAL [Concomitant]
     Indication: Chronic rhinosinusitis with nasal polyps
     Dosage: UNK
     Route: 045
     Dates: start: 20220607
  5. ALBUTEROL [Concomitant]
     Active Substance: ALBUTEROL
     Indication: Asthma
     Dosage: UNK UNK, QD
     Route: 055
     Dates: start: 20210401
  6. RUPAFIN [Concomitant]
     Active Substance: RUPATADINE FUMARATE
     Indication: Rhinitis allergic
     Dosage: UNK
     Route: 048
     Dates: start: 20210401
  7. BUDESONIDE [Concomitant]
     Active Substance: BUDESONIDE
     Indication: Asthma
     Dosage: UNK
     Route: 055
     Dates: start: 20220117, end: 20220807
  8. FORMOTEROL [Concomitant]
     Active Substance: FORMOTEROL
     Indication: Asthma
     Dosage: UNK
     Route: 055
     Dates: start: 20220117, end: 20220807
  9. AMOXICILLIN TRIHYDRATE [Concomitant]
     Active Substance: AMOXICILLIN
     Dosage: 1000 MG, BID
     Route: 048
     Dates: start: 20220708, end: 20220711
  10. CLINDAMYCIN [Concomitant]
     Active Substance: CLINDAMYCIN
     Dosage: 1200 MG, BID
     Route: 048
     Dates: start: 20220712, end: 20220714
  11. CEFUROXIME SODIUM [Concomitant]
     Active Substance: CEFUROXIME SODIUM
     Dosage: 1500 MG, TID
     Route: 048
     Dates: start: 20220715

REACTIONS (3)
  - Granulomatosis with polyangiitis [Not Recovered/Not Resolved]
  - Pneumonia klebsiella [Recovered/Resolved]
  - Mycobacterium avium complex infection [Not Recovered/Not Resolved]

NARRATIVE: CASE EVENT DATE: 20220720
